FAERS Safety Report 22012391 (Version 1)
Quarter: 2023Q1

REPORT INFORMATION
  Report Type: Spontaneous
  Country: US (occurrence: US)
  Receive Date: 20230220
  Receipt Date: 20230220
  Transmission Date: 20230418
  Serious: Yes (Other)
  Sender: FDA-Public Use
  Company Number: US-ALLERGAN-2227998US

PATIENT
  Age: 67 Year
  Sex: Female
  Weight: 86.18 kg

DRUGS (4)
  1. OZURDEX [Suspect]
     Active Substance: DEXAMETHASONE
     Indication: Macular oedema
     Dosage: 0.7 MG, SINGLE
     Route: 031
     Dates: start: 20220607, end: 20220607
  2. OZURDEX [Suspect]
     Active Substance: DEXAMETHASONE
     Indication: Retinal vein occlusion
  3. LATANOPROST [Concomitant]
     Active Substance: LATANOPROST
     Indication: Intraocular pressure test
     Dosage: UNK
     Route: 047
  4. SIMBRINZA [Concomitant]
     Active Substance: BRIMONIDINE TARTRATE\BRINZOLAMIDE
     Indication: Intraocular pressure test
     Dosage: UNK
     Route: 047

REACTIONS (5)
  - Cataract [Unknown]
  - Glaucoma [Not Recovered/Not Resolved]
  - Optic nerve disorder [Not Recovered/Not Resolved]
  - Intraocular pressure increased [Not Recovered/Not Resolved]
  - Drug ineffective [Unknown]

NARRATIVE: CASE EVENT DATE: 20220607
